FAERS Safety Report 18459319 (Version 1)
Quarter: 2020Q4

REPORT INFORMATION
  Report Type: Spontaneous
  Country: US (occurrence: US)
  Receive Date: 20201103
  Receipt Date: 20201103
  Transmission Date: 20210114
  Serious: Yes (Death, Disabling, Other)
  Sender: FDA-Public Use
  Company Number: US-PURDUE-USA-2020-0174174

PATIENT
  Sex: Female

DRUGS (2)
  1. OXYCONTIN [Suspect]
     Active Substance: OXYCODONE HYDROCHLORIDE
     Indication: ACCIDENT AT WORK
     Dosage: UNK
     Route: 048
  2. MS CONTIN [Suspect]
     Active Substance: MORPHINE SULFATE
     Indication: ACCIDENT AT WORK
     Dosage: UNK
     Route: 048

REACTIONS (7)
  - Blindness [Unknown]
  - Dialysis [Unknown]
  - Drug dependence [Unknown]
  - Renal failure [Fatal]
  - Cerebrovascular accident [Unknown]
  - Ill-defined disorder [Unknown]
  - Illness [Unknown]

NARRATIVE: CASE EVENT DATE: 20181229
